FAERS Safety Report 23388367 (Version 1)
Quarter: 2024Q1

REPORT INFORMATION
  Report Type: Spontaneous
  Country: US (occurrence: US)
  Receive Date: 20240110
  Receipt Date: 20240110
  Transmission Date: 20240410
  Serious: No
  Sender: FDA-Public Use
  Company Number: US-KYOWAKIRIN-2024KK000165

PATIENT

DRUGS (1)
  1. CRYSVITA [Suspect]
     Active Substance: BUROSUMAB-TWZA
     Indication: Hypophosphataemic osteomalacia
     Dosage: 90 MG (3 VIALS OF 30 MG)
     Route: 058
     Dates: start: 20240105

REACTIONS (2)
  - Product storage error [Unknown]
  - Medication error [Unknown]

NARRATIVE: CASE EVENT DATE: 20240105
